FAERS Safety Report 8615268 (Version 6)
Quarter: 2012Q4

REPORT INFORMATION
  Report Type: Report from Study
  Country: JP (occurrence: JP)
  Receive Date: 20120614
  Receipt Date: 20121016
  Transmission Date: 20130627
  Serious: Yes (Other)
  Sender: FDA-Public Use
  Company Number: JP-ABBOTT-12P-087-0915655-00

PATIENT
  Age: 78 Year
  Sex: Male
  Weight: 56 kg

DRUGS (11)
  1. HUMIRA 40 MG/ 0.8 ML PRE-FILLED SYRINGE [Suspect]
     Indication: RHEUMATOID ARTHRITIS
     Route: 058
     Dates: start: 20120216, end: 20120304
  2. RHEUMATREX [Suspect]
     Indication: RHEUMATOID ARTHRITIS
     Dosage: 6 mg/week
     Dates: start: 20070227, end: 20110207
  3. RHEUMATREX [Suspect]
     Dosage: 8mg/week
     Dates: start: 20110208, end: 20120301
  4. PREDNISOLONE [Concomitant]
     Indication: RHEUMATOID ARTHRITIS
     Dates: start: 20071016, end: 20090330
  5. PREDNISOLONE [Concomitant]
     Route: 048
     Dates: start: 20090331, end: 20110808
  6. PREDNISOLONE [Concomitant]
     Dates: start: 20110809, end: 20120305
  7. LOXOPROFEN SODIUM HYDRATE [Concomitant]
     Indication: RHEUMATOID ARTHRITIS
     Route: 048
     Dates: start: 20110208
  8. REBAMIPIDE [Concomitant]
     Indication: GASTRITIS PROPHYLAXIS
     Route: 048
     Dates: start: 20110208
  9. MELOXICAM [Concomitant]
     Indication: RHEUMATOID ARTHRITIS
     Dosage: 10mg daily
     Route: 048
     Dates: start: 20090330
  10. RABEPRAZOLE SODIUM [Concomitant]
     Indication: RHEUMATOID ARTHRITIS
     Dosage: 10mg daily
     Route: 048
     Dates: start: 20090330
  11. BETAMETHASONE VALERIATE W/GENTAMICIN SULFATE [Concomitant]
     Indication: DERMATITIS
     Dates: start: 20090616, end: 20090831

REACTIONS (6)
  - Chest X-ray abnormal [Recovering/Resolving]
  - Atypical mycobacterial infection [Recovering/Resolving]
  - Productive cough [Recovered/Resolved]
  - Atypical mycobacterial infection [Not Recovered/Not Resolved]
  - Pyrexia [Unknown]
  - Malaise [Unknown]
